FAERS Safety Report 11140195 (Version 2)
Quarter: 2025Q1

REPORT INFORMATION
  Report Type: Spontaneous
  Country: US (occurrence: US)
  Receive Date: 20150525
  Receipt Date: 20250305
  Transmission Date: 20250409
  Serious: Yes (Other)
  Sender: JOHNSON AND JOHNSON
  Company Number: US-JNJFOC-20131018181

PATIENT
  Sex: Male

DRUGS (7)
  1. RISPERDAL [Suspect]
     Active Substance: RISPERIDONE
     Indication: Attention deficit hyperactivity disorder
     Route: 065
     Dates: start: 2001, end: 2003
  2. RISPERDAL [Suspect]
     Active Substance: RISPERIDONE
  3. RISPERDAL [Suspect]
     Active Substance: RISPERIDONE
  4. RISPERDAL [Suspect]
     Active Substance: RISPERIDONE
  5. RISPERDAL [Suspect]
     Active Substance: RISPERIDONE
  6. RISPERDAL [Suspect]
     Active Substance: RISPERIDONE
  7. RITALIN [Concomitant]
     Active Substance: METHYLPHENIDATE HYDROCHLORIDE
     Route: 065

REACTIONS (4)
  - Gynaecomastia [Recovering/Resolving]
  - Obesity [Unknown]
  - Emotional disorder [Unknown]
  - Off label use [Unknown]

NARRATIVE: CASE EVENT DATE: 20010101
